FAERS Safety Report 9526076 (Version 1)
Quarter: 2013Q3

REPORT INFORMATION
  Report Type: Spontaneous
  Country: PH (occurrence: PH)
  Receive Date: 20130916
  Receipt Date: 20130916
  Transmission Date: 20140515
  Serious: Yes (Death)
  Sender: FDA-Public Use
  Company Number: PH-MERCK-1309PHL005496

PATIENT
  Sex: Female

DRUGS (1)
  1. JANUMET [Suspect]
     Dosage: 1 TABLET, QD
     Route: 048

REACTIONS (4)
  - Diabetic complication [Fatal]
  - Pneumonia [Fatal]
  - Lung disorder [Fatal]
  - Inappropriate schedule of drug administration [Unknown]
